FAERS Safety Report 9165796 (Version 1)
Quarter: 2013Q1

REPORT INFORMATION
  Report Type: Spontaneous
  Country: US (occurrence: US)
  Receive Date: 20130315
  Receipt Date: 20130315
  Transmission Date: 20140127
  Serious: No
  Sender: FDA-Public Use
  Company Number: US-B.I. PHARMACEUTICALS,INC./RIDGEFIELD-2013-BI-06917BP

PATIENT
  Sex: Male
  Weight: 67 kg

DRUGS (1)
  1. AGGRENOX [Suspect]
     Indication: CEREBROVASCULAR ACCIDENT PROPHYLAXIS
     Dosage: STRENGTH: 25 MG / 200 MG; DAILY DOSE: 50MG/ 400 MG
     Route: 048
     Dates: start: 2005

REACTIONS (5)
  - Red blood cell count decreased [Not Recovered/Not Resolved]
  - Influenza [Recovered/Resolved]
  - Drug withdrawal headache [Recovered/Resolved]
  - Drug withdrawal headache [Recovered/Resolved]
  - Nasopharyngitis [Recovered/Resolved]
